FAERS Safety Report 19582456 (Version 1)
Quarter: 2021Q3

REPORT INFORMATION
  Report Type: Spontaneous
  Country: US (occurrence: US)
  Receive Date: 20210720
  Receipt Date: 20210720
  Transmission Date: 20211014
  Serious: No
  Sender: FDA-Public Use
  Company Number: US-IPSEN BIOPHARMACEUTICALS, INC.-2021-17055

PATIENT
  Age: 53 Year
  Sex: Female

DRUGS (12)
  1. DYSPORT [Suspect]
     Active Substance: ABOBOTULINUMTOXINA
     Indication: SKIN WRINKLING
     Dosage: DOSE NOT REPORTED
     Route: 065
     Dates: start: 20200317, end: 20200317
  2. PELLET TESTOSTERONE [Concomitant]
     Dosage: FOR LAST 3 YEARS
     Dates: start: 2018
  3. MULTIVITAMIN [Concomitant]
     Active Substance: VITAMINS
     Dosage: SINCE AGE 35
  4. COENZYME Q10 [Concomitant]
     Active Substance: DIETARY SUPPLEMENT\UBIDECARENONE
  5. VIT D [Concomitant]
     Active Substance: VITAMIN D NOS
  6. VITAMIN C [Concomitant]
     Active Substance: ASCORBIC ACID
     Dates: start: 2014
  7. RESTYLANE LYFT [Suspect]
     Active Substance: HYALURONIC ACID
     Indication: SKIN WRINKLING
     Dosage: WITH LIDOCAINE
     Dates: start: 20210330
  8. LEVOTHYROXINE. [Concomitant]
     Active Substance: LEVOTHYROXINE
     Dosage: Q AM
     Dates: start: 2019
  9. RADIESSE [Suspect]
     Active Substance: TRIBASIC CALCIUM PHOSPHATE
     Dates: start: 20200616
  10. CALCIUM WITH MAGNESIUM [Concomitant]
     Dates: start: 2014
  11. STATIN [Concomitant]
     Active Substance: UNSPECIFIED INGREDIENT
     Dosage: 3 YEARS AGO; QHS (AT NIGHT)
     Dates: start: 2018
  12. RADIESSE [Suspect]
     Active Substance: TRIBASIC CALCIUM PHOSPHATE
     Indication: SKIN WRINKLING
     Dosage: 1.5 CC INJECTOR USED; .75 EACH CHEEK
     Dates: start: 20210330

REACTIONS (6)
  - Ear discomfort [Recovering/Resolving]
  - Hypoaesthesia [Recovered/Resolved]
  - Off label use [Unknown]
  - Muscle tightness [Recovering/Resolving]
  - Neuralgia [Recovered/Resolved]
  - Hypoaesthesia oral [Recovered/Resolved]

NARRATIVE: CASE EVENT DATE: 20200502
